FAERS Safety Report 13273396 (Version 2)
Quarter: 2017Q1

REPORT INFORMATION
  Report Type: Spontaneous
  Country: PL (occurrence: PL)
  Receive Date: 20170227
  Receipt Date: 20170314
  Transmission Date: 20170428
  Serious: Yes (Death)
  Sender: FDA-Public Use
  Company Number: PHHY2017PL027229

PATIENT
  Age: 66 Year
  Sex: Female
  Weight: 60 kg

DRUGS (1)
  1. NILOTINIB [Suspect]
     Active Substance: NILOTINIB
     Indication: CHRONIC MYELOID LEUKAEMIA
     Dosage: 400 MG, BID
     Route: 048
     Dates: start: 20161122, end: 20170118

REACTIONS (4)
  - Central nervous system haemorrhage [Fatal]
  - Blast crisis in myelogenous leukaemia [Fatal]
  - Chronic myeloid leukaemia transformation [Fatal]
  - Concomitant disease aggravated [Fatal]

NARRATIVE: CASE EVENT DATE: 20170112
